FAERS Safety Report 25899320 (Version 1)
Quarter: 2025Q4

REPORT INFORMATION
  Report Type: Spontaneous
  Country: EU (occurrence: EU)
  Receive Date: 20251009
  Receipt Date: 20251009
  Transmission Date: 20260118
  Serious: No
  Sender: ALKEM
  Company Number: EU-ALKEM LABORATORIES LIMITED-DE-ALKEM-2025-08128

PATIENT
  Age: 44 Year
  Sex: Female

DRUGS (8)
  1. CLOBAZAM [Suspect]
     Active Substance: CLOBAZAM
     Indication: Partial seizures
     Dosage: 10 MG/DAY
     Route: 065
  2. LACOSAMIDE [Suspect]
     Active Substance: LACOSAMIDE
     Indication: Partial seizures
     Dosage: UNK
     Route: 065
  3. LACOSAMIDE [Suspect]
     Active Substance: LACOSAMIDE
     Dosage: 500 MILLIGRAM
     Route: 065
     Dates: start: 202202
  4. OXCARBAZEPINE [Suspect]
     Active Substance: OXCARBAZEPINE
     Indication: Partial seizures
     Dosage: 900 MG/DAY
     Route: 065
     Dates: start: 202202
  5. OXCARBAZEPINE [Suspect]
     Active Substance: OXCARBAZEPINE
     Dosage: 600 MG/DAY
     Route: 065
  6. CENOBAMATE [Concomitant]
     Active Substance: CENOBAMATE
     Indication: Epilepsy
     Dosage: 12.5 MG/DAY
     Route: 065
     Dates: start: 20220630
  7. CENOBAMATE [Concomitant]
     Active Substance: CENOBAMATE
     Dosage: 400 MG/DAY (DOSE INCREASED)
     Route: 065
     Dates: start: 202306
  8. CENOBAMATE [Concomitant]
     Active Substance: CENOBAMATE
     Dosage: 400 MG/DAY (DOSE INCREASED)
     Route: 065
     Dates: start: 202307

REACTIONS (5)
  - Dizziness [Recovered/Resolved]
  - Multiple-drug resistance [Unknown]
  - Drug ineffective [Unknown]
  - Overdose [Unknown]
  - Off label use [Unknown]
